FAERS Safety Report 8800011 (Version 1)
Quarter: 2012Q4

REPORT INFORMATION
  Report Type: 
  Country: US (occurrence: US)
  Receive Date: 20120921
  Receipt Date: 20120921
  Transmission Date: 20130627
  Serious: Yes (Other)
  Sender: FDA-Public Use
  Company Number: US-AMGEN-USASP2012059033

PATIENT
  Age: 8 Year
  Sex: Male

DRUGS (7)
  1. NEULASTA [Suspect]
     Indication: B-CELL LYMPHOMA
     Dosage: UNK
  2. METHOTREXATE [Concomitant]
  3. PREDNISONE [Concomitant]
     Indication: B-CELL LYMPHOMA
  4. LEUCOVORIN /00566701/ [Concomitant]
     Indication: B-CELL LYMPHOMA
  5. DOXORUBICIN [Concomitant]
     Indication: B-CELL LYMPHOMA
  6. RITUXIMAB [Concomitant]
     Indication: B-CELL LYMPHOMA
  7. VINCRISTINE [Concomitant]
     Indication: B-CELL LYMPHOMA

REACTIONS (3)
  - Abdominal abscess [Unknown]
  - Food allergy [Recovering/Resolving]
  - Urticaria [Recovering/Resolving]
